FAERS Safety Report 19905056 (Version 1)
Quarter: 2021Q3

REPORT INFORMATION
  Report Type: Other
  Country: US (occurrence: US)
  Receive Date: 20210930
  Receipt Date: 20210930
  Transmission Date: 20211014
  Serious: Yes (Hospitalization, Other)
  Sender: FDA-Public Use
  Company Number: US-SERVIER-S21010566

PATIENT

DRUGS (6)
  1. ONCASPAR [Suspect]
     Active Substance: PEGASPARGASE
     Indication: OFF LABEL USE
  2. TN UNSPECIFIED [ETOPOSIDE] [Suspect]
     Active Substance: ETOPOSIDE
     Indication: ANGIOCENTRIC LYMPHOMA
     Dosage: 100 MG/M2, UNK
     Route: 065
  3. ONCASPAR [Suspect]
     Active Substance: PEGASPARGASE
     Indication: ANGIOCENTRIC LYMPHOMA
     Dosage: 2000 U/M?, ON DAY 8 OF EACH 28?DAY CYCLE
     Route: 042
  4. TN UNSPECIFIED [DEXAMETHASONE SODIUM SUCCINATE] [Suspect]
     Active Substance: DEXAMETHASONE SODIUM SUCCINATE
     Indication: ANGIOCENTRIC LYMPHOMA
     Dosage: 40 MG, ON DAYS 2 TO 4 OF EACH 28?DAY CYCLE
     Route: 065
  5. TN UNSPECIFIED [METHOTREXATE SODIUM] [Suspect]
     Active Substance: METHOTREXATE SODIUM
     Indication: ANGIOCENTRIC LYMPHOMA
     Dosage: 2 G/M?, ON DAY 1 OF EACH 28?DAY CYCLE
     Route: 042
  6. TN UNSPECIFIED [IFOSFAMIDE] [Suspect]
     Active Substance: IFOSFAMIDE
     Indication: ANGIOCENTRIC LYMPHOMA
     Dosage: 1500 MG/M2, UNK
     Route: 065

REACTIONS (3)
  - Cytopenia [Unknown]
  - Neutropenia [Unknown]
  - Fatigue [Unknown]

NARRATIVE: CASE EVENT DATE: 2021
